FAERS Safety Report 8858735 (Version 2)
Quarter: 2013Q1

REPORT INFORMATION
  Report Type: Report from Study
  Country: NO (occurrence: NO)
  Receive Date: 20121024
  Receipt Date: 20130305
  Transmission Date: 20140127
  Serious: Yes (Life-Threatening)
  Sender: FDA-Public Use
  Company Number: NO-009507513-1210NOR010023

PATIENT
  Age: 65 Year
  Sex: Male

DRUGS (15)
  1. EPTIFIBATIDE [Suspect]
     Indication: ACUTE CORONARY SYNDROME
     Dosage: 13 ML, UNK
     Route: 042
     Dates: start: 20120229, end: 20120302
  2. EPTIFIBATIDE [Suspect]
     Dosage: 7.3 ML, UNK
     Route: 040
     Dates: start: 20120229, end: 20120229
  3. INVESTIGATIONAL DRUG [Suspect]
     Indication: ACUTE CORONARY SYNDROME
     Dosage: UNK
     Route: 042
     Dates: start: 20120229
  4. ASPIRIN [Suspect]
     Indication: ACUTE CORONARY SYNDROME
     Dosage: 75 MG, QD
     Route: 048
     Dates: start: 20060916
  5. ASPIRIN [Suspect]
     Dosage: 300 MG, QD
     Route: 048
     Dates: start: 20120228
  6. CLOPIDOGREL BISULFATE [Suspect]
     Indication: ACUTE CORONARY SYNDROME
     Dosage: 300 MG, QD
     Route: 048
     Dates: start: 20120228
  7. CLOPIDOGREL BISULFATE [Suspect]
     Dosage: 75 MG, QD
     Route: 048
     Dates: start: 20120229, end: 20120618
  8. VERAPAMIL [Concomitant]
     Dosage: UNK
     Dates: start: 20120229, end: 20120229
  9. ATORVASTATIN CALCIUM [Concomitant]
  10. LIDOCAINE HYDROCHLORIDE [Concomitant]
     Dosage: UNK
     Dates: start: 20120229, end: 20120229
  11. DIAZEPAM [Concomitant]
     Dosage: UNK
     Dates: start: 20120229, end: 20120229
  12. ENOXAPARIN SODIUM [Concomitant]
     Dosage: UNK
     Dates: start: 20120228, end: 20120228
  13. ENOXAPARIN SODIUM [Concomitant]
     Dosage: UNK
     Dates: start: 20120229, end: 20120301
  14. METOPROLOL SUCCINATE [Concomitant]
  15. NITROGLYCERIN [Concomitant]
     Dosage: UNK
     Dates: start: 20120229, end: 20120229

REACTIONS (1)
  - Post procedural haemorrhage [Recovered/Resolved]
